FAERS Safety Report 7415424-8 (Version None)
Quarter: 2011Q2

REPORT INFORMATION
  Report Type: 
  Country: None (occurrence: None)
  Receive Date: 20110406
  Receipt Date: 20110324
  Transmission Date: 20111010
  Serious: Yes (Disabling)
  Sender: FDA-Public Use
  Company Number: JPI-P-013782

PATIENT
  Age: 37 Year
  Sex: Female
  Weight: 141.0687 kg

DRUGS (11)
  1. ARMODAFINIL [Concomitant]
  2. OMEPRAZOLE [Concomitant]
  3. VITAMIN D [Concomitant]
  4. ADALIMUMAB [Concomitant]
  5. CELECOXIB [Concomitant]
  6. NEURONTIN [Concomitant]
  7. CITALOPRAM HYDROBROMIDE [Concomitant]
  8. XYREM [Suspect]
     Indication: SOMNOLENCE
     Dosage: 4.5 GM (2.25 GM, 2 IN 1 D), ORAL; 6 GM (3 GM, 2 IN 1 D), ORAL; 9 GM (4.5 GM, 2 IN 1 D), ORAL
     Route: 048
     Dates: start: 20101120
  9. XYREM [Suspect]
     Indication: NARCOLEPSY
     Dosage: 4.5 GM (2.25 GM, 2 IN 1 D), ORAL; 6 GM (3 GM, 2 IN 1 D), ORAL; 9 GM (4.5 GM, 2 IN 1 D), ORAL
     Route: 048
     Dates: start: 20101120
  10. XYREM [Suspect]
     Indication: SOMNOLENCE
     Dosage: 4.5 GM (2.25 GM, 2 IN 1 D), ORAL; 6 GM (3 GM, 2 IN 1 D), ORAL; 9 GM (4.5 GM, 2 IN 1 D), ORAL
     Route: 048
     Dates: start: 20110107
  11. XYREM [Suspect]
     Indication: NARCOLEPSY
     Dosage: 4.5 GM (2.25 GM, 2 IN 1 D), ORAL; 6 GM (3 GM, 2 IN 1 D), ORAL; 9 GM (4.5 GM, 2 IN 1 D), ORAL
     Route: 048
     Dates: start: 20110107

REACTIONS (5)
  - DEPRESSION [None]
  - FEELING ABNORMAL [None]
  - PANIC ATTACK [None]
  - WEIGHT DECREASED [None]
  - ANXIETY [None]
